FAERS Safety Report 8548131-9 (Version None)
Quarter: 2012Q3

REPORT INFORMATION
  Report Type: 
  Country: None (occurrence: None)
  Receive Date: 20120730
  Receipt Date: 20120720
  Transmission Date: 20120928
  Serious: Yes (Hospitalization)
  Sender: FDA-Public Use
  Company Number: US-BIOGENIDEC-2011BI048975

PATIENT
  Age: 51 Year
  Sex: Male

DRUGS (2)
  1. TYSABRI [Suspect]
     Indication: MULTIPLE SCLEROSIS
     Route: 042
     Dates: start: 20071003, end: 20111012
  2. TYSABRI [Suspect]
     Route: 042
     Dates: start: 20120101

REACTIONS (4)
  - OBSTRUCTIVE UROPATHY [None]
  - CYSTITIS [None]
  - WEIGHT DECREASED [None]
  - CYSTITIS HAEMORRHAGIC [None]
